FAERS Safety Report 8601445 (Version 2)
Quarter: 2014Q1

REPORT INFORMATION
  Report Type: Spontaneous
  Country: US (occurrence: None)
  Receive Date: 20120525
  Receipt Date: 20140107
  Transmission Date: 20141002
  Serious: Yes (Hospitalization)
  Sender: FDA-Public Use
  Company Number: 2012AP001434

PATIENT
  Age: 5 Year
  Sex: Male

DRUGS (5)
  1. LEVETIRACETAM [Suspect]
     Indication: PRODUCT USED FOR UNKNOWN INDICATION
  2. TOPIRAMATE [Suspect]
     Indication: PRODUCT USED FOR UNKNOWN INDICATION
  3. OXCARBAZEPINE [Suspect]
     Indication: PRODUCT USED FOR UNKNOWN INDICATION
  4. RISPERIDONE [Suspect]
     Indication: PRODUCT USED FOR UNKNOWN INDICATION
  5. LAMOTRIGINE [Suspect]
     Indication: PRODUCT USED FOR UNKNOWN INDICATION
     Dosage: 100 MG; BID

REACTIONS (15)
  - Psychomotor hyperactivity [None]
  - Hypersexuality [None]
  - Aggression [None]
  - Rash [None]
  - Drug ineffective [None]
  - Negativism [None]
  - Mood altered [None]
  - Gait disturbance [None]
  - Dyskinesia [None]
  - Ataxia [None]
  - Coordination abnormal [None]
  - Muscular weakness [None]
  - Sensory disturbance [None]
  - Thrombocytopenia [None]
  - Chorea [None]
